FAERS Safety Report 14896204 (Version 5)
Quarter: 2018Q3

REPORT INFORMATION
  Report Type: Spontaneous
  Country: RO (occurrence: RO)
  Receive Date: 20180515
  Receipt Date: 20180724
  Transmission Date: 20181010
  Serious: Yes (Other)
  Sender: FDA-Public Use
  Company Number: RO-PFIZER INC-2018194182

PATIENT
  Sex: Female
  Weight: 1.49 kg

DRUGS (18)
  1. CEFTAZIDIME. [Suspect]
     Active Substance: CEFTAZIDIME
     Indication: SEPSIS NEONATAL
     Dosage: UNK
  2. VANCOMYCIN [Concomitant]
     Active Substance: VANCOMYCIN
     Indication: BACTERIAL SEPSIS
  3. PLATELETS [Concomitant]
     Active Substance: HUMAN PLATELET, ALLOGENIC
     Indication: ESCHERICHIA SEPSIS
  4. AMIKACIN. [Concomitant]
     Active Substance: AMIKACIN
     Indication: SEPSIS NEONATAL
     Dosage: UNK
  5. ALBUMIN [Concomitant]
     Active Substance: ALBUMIN HUMAN
     Indication: SEPSIS NEONATAL
     Dosage: UNK
  6. PENTOXIFILIN [Concomitant]
     Indication: SEPSIS NEONATAL
     Dosage: UNK
  7. PLATELETS [Concomitant]
     Active Substance: HUMAN PLATELET, ALLOGENIC
     Indication: SEPSIS NEONATAL
     Dosage: UNK
  8. MEROPENEM. [Suspect]
     Active Substance: MEROPENEM
     Indication: SEPSIS NEONATAL
     Dosage: UNK
  9. MEROPENEM. [Suspect]
     Active Substance: MEROPENEM
     Indication: ESCHERICHIA SEPSIS
  10. PENTOXIFILIN [Concomitant]
     Indication: ESCHERICHIA SEPSIS
  11. COLISTIN [Concomitant]
     Active Substance: COLISTIN
     Indication: ESCHERICHIA SEPSIS
  12. FLUCONAZOLE. [Suspect]
     Active Substance: FLUCONAZOLE
     Indication: ESCHERICHIA SEPSIS
  13. CEFTAZIDIME. [Suspect]
     Active Substance: CEFTAZIDIME
     Indication: ESCHERICHIA SEPSIS
  14. VANCOMYCIN [Concomitant]
     Active Substance: VANCOMYCIN
     Indication: SEPSIS NEONATAL
     Dosage: UNK
  15. COLISTIN [Concomitant]
     Active Substance: COLISTIN
     Indication: SEPSIS NEONATAL
     Dosage: UNK
  16. AMIKACIN. [Concomitant]
     Active Substance: AMIKACIN
     Indication: ESCHERICHIA SEPSIS
  17. ALBUMIN [Concomitant]
     Active Substance: ALBUMIN HUMAN
     Indication: ESCHERICHIA SEPSIS
  18. FLUCONAZOLE. [Suspect]
     Active Substance: FLUCONAZOLE
     Indication: SEPSIS NEONATAL
     Dosage: UNK

REACTIONS (4)
  - Jaundice [Unknown]
  - Blood lactate dehydrogenase increased [Unknown]
  - Gamma-glutamyltransferase increased [Unknown]
  - Aspartate aminotransferase increased [Unknown]
